FAERS Safety Report 15287153 (Version 1)
Quarter: 2018Q3

REPORT INFORMATION
  Report Type: Report from Study
  Country: DE (occurrence: DE)
  Receive Date: 20180817
  Receipt Date: 20180817
  Transmission Date: 20181010
  Serious: Yes (Hospitalization)
  Sender: FDA-Public Use
  Company Number: DE-TEVA-2018-DE-941613

PATIENT
  Age: 16 Year
  Sex: Male
  Weight: 69.2 kg

DRUGS (6)
  1. PREDNISON [Suspect]
     Active Substance: PREDNISONE
     Indication: STILL^S DISEASE
     Dosage: 5 MILLIGRAM DAILY;
     Route: 048
     Dates: start: 20111217
  2. PANTOZOL [Concomitant]
     Active Substance: PANTOPRAZOLE SODIUM
     Route: 065
     Dates: start: 201705
  3. NOVALGIN (METAMIZOLE SODIUM) [Concomitant]
     Active Substance: METAMIZOLE SODIUM
     Indication: STILL^S DISEASE
     Dosage: 1500 MILLIGRAM DAILY;
     Route: 048
     Dates: start: 20160628
  4. METHOTREXAT [Suspect]
     Active Substance: METHOTREXATE
     Indication: STILL^S DISEASE
     Route: 048
     Dates: start: 20090303
  5. ETORICOXIB. [Concomitant]
     Active Substance: ETORICOXIB
     Indication: STILL^S DISEASE
     Dosage: 180 MILLIGRAM DAILY;
     Route: 048
     Dates: start: 20160120
  6. ROACTEMRA [Suspect]
     Active Substance: TOCILIZUMAB
     Indication: STILL^S DISEASE
     Route: 042
     Dates: start: 20111217, end: 20170531

REACTIONS (2)
  - Pain in extremity [Recovered/Resolved]
  - Back pain [Recovered/Resolved]

NARRATIVE: CASE EVENT DATE: 20170612
